FAERS Safety Report 17811020 (Version 1)
Quarter: 2020Q2

REPORT INFORMATION
  Report Type: Spontaneous
  Country: US (occurrence: US)
  Receive Date: 20200520
  Receipt Date: 20200520
  Transmission Date: 20200714
  Serious: Yes (Death)
  Sender: FDA-Public Use
  Company Number: None

PATIENT
  Age: 72 Year
  Sex: Male
  Weight: 69 kg

DRUGS (22)
  1. CEFAZOLIN [Concomitant]
     Active Substance: CEFAZOLIN
  2. ROCURONIUM [Concomitant]
     Active Substance: ROCURONIUM BROMIDE
  3. CISATRICURIUM [Concomitant]
  4. INSULIN LISPRO [Concomitant]
     Active Substance: INSULIN LISPRO
  5. LANSOPRAZOLE. [Concomitant]
     Active Substance: LANSOPRAZOLE
  6. SODIUM BICARBONATE. [Concomitant]
     Active Substance: SODIUM BICARBONATE
  7. FENTANYL. [Concomitant]
     Active Substance: FENTANYL
  8. MIDAZOLAM. [Concomitant]
     Active Substance: MIDAZOLAM
  9. ASPIRIN. [Concomitant]
     Active Substance: ASPIRIN
  10. ANGIOTENSIN II [Concomitant]
     Active Substance: ANGIOTENSIN II
  11. NOREPINEPHRINE. [Concomitant]
     Active Substance: NOREPINEPHRINE
  12. VANCOMYCIN [Concomitant]
     Active Substance: VANCOMYCIN
  13. HYDROXYCHLOROQUINE [Concomitant]
     Active Substance: HYDROXYCHLOROQUINE
  14. INSULIN GLARGINE [Concomitant]
     Active Substance: INSULIN GLARGINE
  15. HYDROMORPHONE [Concomitant]
     Active Substance: HYDROMORPHONE
  16. AZITHROMYCIN ANHYDROUS. [Concomitant]
     Active Substance: AZITHROMYCIN ANHYDROUS
  17. PROPOFOL. [Concomitant]
     Active Substance: PROPOFOL
  18. VECURONIUM [Concomitant]
     Active Substance: VECURONIUM BROMIDE
  19. HYDROCORTISONE. [Concomitant]
     Active Substance: HYDROCORTISONE
  20. REMDESIVIR. [Suspect]
     Active Substance: REMDESIVIR
     Indication: COVID-19
     Route: 040
     Dates: start: 20200516, end: 20200519
  21. HEPARIN [Concomitant]
     Active Substance: HEPARIN SODIUM
  22. VASOPRESSIN. [Concomitant]
     Active Substance: VASOPRESSIN

REACTIONS (1)
  - Acute kidney injury [None]

NARRATIVE: CASE EVENT DATE: 20200519
